FAERS Safety Report 10771627 (Version 1)
Quarter: 2015Q1

REPORT INFORMATION
  Report Type: Spontaneous
  Country: US (occurrence: US)
  Receive Date: 20150206
  Receipt Date: 20150206
  Transmission Date: 20150721
  Serious: Yes (Other)
  Sender: FDA-Public Use
  Company Number: US-TEVA-539221USA

PATIENT
  Sex: Female

DRUGS (2)
  1. BETASERON [Concomitant]
     Active Substance: INTERFERON BETA-1B
  2. COPAXONE [Suspect]
     Active Substance: GLATIRAMER ACETATE
     Indication: MULTIPLE SCLEROSIS
     Dosage: DOSAGE FORM UNKNOWN

REACTIONS (9)
  - Central nervous system lesion [Unknown]
  - Fatigue [Unknown]
  - Hypoaesthesia [Unknown]
  - Memory impairment [Unknown]
  - Fall [Unknown]
  - Activities of daily living impaired [Unknown]
  - Asthenia [Unknown]
  - Drug ineffective [Unknown]
  - Multiple sclerosis relapse [Unknown]
